FAERS Safety Report 24371716 (Version 4)
Quarter: 2024Q4

REPORT INFORMATION
  Report Type: Spontaneous
  Country: GB (occurrence: GB)
  Receive Date: 20240927
  Receipt Date: 20241127
  Transmission Date: 20250115
  Serious: No
  Sender: PFIZER
  Company Number: GB-PFIZER INC-202400261583

PATIENT
  Age: 22 Year
  Sex: Female

DRUGS (1)
  1. GENOTROPIN [Suspect]
     Active Substance: SOMATROPIN
     Indication: Hyperpituitarism
     Dosage: 0.3 MG, 1X/DAY (OD-ONCE DAILY)
     Route: 058
     Dates: start: 20240912

REACTIONS (4)
  - Device use error [Unknown]
  - Product preparation issue [Unknown]
  - Device leakage [Unknown]
  - Off label use [Unknown]
